FAERS Safety Report 4766441-8 (Version None)
Quarter: 2005Q3

REPORT INFORMATION
  Report Type: 
  Country: None (occurrence: None)
  Receive Date: 20050912
  Receipt Date: 20050830
  Transmission Date: 20060218
  Serious: Yes (Hospitalization)
  Sender: FDA-Public Use
  Company Number: FR-ROCHE-416929

PATIENT
  Sex: Male
  Weight: 2.9 kg

DRUGS (6)
  1. INVIRASE [Suspect]
     Indication: HIV INFECTION
     Dates: start: 20000615
  2. VIRACEPT [Suspect]
     Indication: HIV INFECTION
     Dates: start: 20000615
  3. IRON [Concomitant]
  4. ALUMINUM HYDROXIDE AND MAGNESIUM TRISILICATE [Concomitant]
  5. PHLOROGLUCINOL [Concomitant]
  6. VIRAMUNE [Suspect]
     Indication: HIV INFECTION
     Dates: start: 20000615

REACTIONS (10)
  - ANAEMIA [None]
  - ANAEMIA NEONATAL [None]
  - BLOOD CREATININE INCREASED [None]
  - BLOOD PYRUVIC ACID DECREASED [None]
  - DRUG EXPOSURE DURING PREGNANCY [None]
  - HYPERTRIGLYCERIDAEMIA [None]
  - LABORATORY TEST ABNORMAL [None]
  - NEUTROPENIA [None]
  - NEUTROPENIA NEONATAL [None]
  - THROMBOCYTHAEMIA [None]
